FAERS Safety Report 25572063 (Version 2)
Quarter: 2025Q3

REPORT INFORMATION
  Report Type: Spontaneous
  Country: US (occurrence: US)
  Receive Date: 20250717
  Receipt Date: 20250721
  Transmission Date: 20251021
  Serious: Yes (Life-Threatening, Hospitalization)
  Sender: PFIZER
  Company Number: US-MLMSERVICE-20250710-PI572912-00273-1

PATIENT
  Age: 43 Year
  Sex: Male

DRUGS (2)
  1. PROPOFOL [Suspect]
     Active Substance: PROPOFOL
     Indication: Agitation
  2. FENTANYL [Concomitant]
     Active Substance: FENTANYL
     Indication: Sedative therapy

REACTIONS (2)
  - Myoclonus [Recovered/Resolved]
  - Off label use [Unknown]
